FAERS Safety Report 4969643-0 (Version None)
Quarter: 2006Q1

REPORT INFORMATION
  Report Type: 
  Country: None (occurrence: None)
  Receive Date: 20060202
  Receipt Date: 20051213
  Transmission Date: 20060701
  Serious: Yes (Other)
  Sender: FDA-Public Use
  Company Number: US-SHR-03-006591

PATIENT
  Sex: Female

DRUGS (2)
  1. MIRENA [Suspect]
     Dosage: 20 UG/DAY, CONT, INTRA-UTERINE
     Route: 015
     Dates: start: 20030321
  2. MIRENA [Suspect]
     Dosage: 20 UG/DAY,CONT, INTRA-UTERINE
     Route: 015
     Dates: start: 20030501

REACTIONS (4)
  - MEDICATION ERROR [None]
  - OVARIAN CYST [None]
  - PROCEDURAL PAIN [None]
  - UTERINE PERFORATION [None]
